FAERS Safety Report 19702122 (Version 9)
Quarter: 2022Q2

REPORT INFORMATION
  Report Type: Report from Study
  Country: US (occurrence: US)
  Receive Date: 20210813
  Receipt Date: 20220429
  Transmission Date: 20220721
  Serious: Yes (Hospitalization, Other)
  Sender: FDA-Public Use
  Company Number: NVSC2021US179423

PATIENT
  Age: 64 Year
  Sex: Male

DRUGS (2)
  1. ENTRESTO [Suspect]
     Active Substance: SACUBITRIL\VALSARTAN
     Indication: Cardiac failure chronic
     Dosage: UNK
     Route: 065
  2. AMIODARONE [Suspect]
     Active Substance: AMIODARONE
     Indication: Product used for unknown indication
     Dosage: UNK
     Route: 065

REACTIONS (10)
  - Tachycardia [Unknown]
  - Neuropathy peripheral [Unknown]
  - Arrhythmia [Not Recovered/Not Resolved]
  - Syncope [Unknown]
  - Palpitations [Unknown]
  - Heart rate increased [Unknown]
  - Chest discomfort [Unknown]
  - Decreased activity [Unknown]
  - Ejection fraction decreased [Not Recovered/Not Resolved]
  - Dizziness [Not Recovered/Not Resolved]
